FAERS Safety Report 17592866 (Version 1)
Quarter: 2020Q1

REPORT INFORMATION
  Report Type: Spontaneous
  Country: DE (occurrence: DE)
  Receive Date: 20200327
  Receipt Date: 20200327
  Transmission Date: 20200409
  Serious: Yes (Hospitalization, Other)
  Sender: FDA-Public Use
  Company Number: DE-ALLERGAN-2013214US

PATIENT
  Sex: Female

DRUGS (1)
  1. CITALOPRAM HYDROBROMIDE - BP [Suspect]
     Active Substance: CITALOPRAM HYDROBROMIDE
     Indication: DEPRESSION
     Dosage: OVERDOSE: 200 MG
     Route: 065
     Dates: start: 201711, end: 20191207

REACTIONS (2)
  - Overdose [Unknown]
  - Suicide attempt [Recovered/Resolved]

NARRATIVE: CASE EVENT DATE: 20191207
